FAERS Safety Report 16290217 (Version 1)
Quarter: 2019Q2

REPORT INFORMATION
  Report Type: Spontaneous
  Country: LK (occurrence: LK)
  Receive Date: 20190509
  Receipt Date: 20190509
  Transmission Date: 20190711
  Serious: Yes (Hospitalization)
  Sender: FDA-Public Use
  Company Number: LK-FRESENIUS KABI-FK201905278

PATIENT
  Age: 55 Year
  Sex: Male

DRUGS (4)
  1. LEVODOPA/CARBIDOPA [Suspect]
     Active Substance: CARBIDOPA\LEVODOPA
     Indication: BLOOD CARBON MONOXIDE
     Route: 065
  2. LEVODOPA/CARBIDOPA [Suspect]
     Active Substance: CARBIDOPA\LEVODOPA
     Indication: NEUROPSYCHIATRIC SYMPTOMS
  3. DEXAMETHASONE INJECTION (MANUFACTURER UNKNOWN) [Suspect]
     Active Substance: DEXAMETHASONE
     Indication: BLOOD CARBON MONOXIDE
     Route: 065
  4. DEXAMETHASONE INJECTION (MANUFACTURER UNKNOWN) [Suspect]
     Active Substance: DEXAMETHASONE
     Indication: NEUROPSYCHIATRIC SYMPTOMS

REACTIONS (2)
  - Product use in unapproved indication [Unknown]
  - Drug ineffective [Not Recovered/Not Resolved]
